FAERS Safety Report 4491572-X (Version None)
Quarter: 2004Q4

REPORT INFORMATION
  Report Type: 
  Country: None (occurrence: None)
  Receive Date: 20041103
  Receipt Date: 20030107
  Transmission Date: 20050328
  Serious: Yes (Hospitalization, Other)
  Sender: FDA-Public Use
  Company Number: US-AMGEN-KDL026919

PATIENT
  Age: 47 Year
  Sex: Male
  Weight: 66.7 kg

DRUGS (9)
  1. EPOGEN [Suspect]
     Indication: PRE-EXISTING DISEASE
     Route: 058
     Dates: start: 20020401, end: 20020925
  2. RIBAVIRIN AND INTERFERON ALFA-2B [Suspect]
  3. AZT [Suspect]
  4. LAMIVUDINE [Concomitant]
     Dates: start: 19990601
  5. ABACAVIR [Concomitant]
     Dates: start: 19990601
  6. SUSTIVA [Concomitant]
  7. TENOFOVIR DISOPROXIL FUMARAT [Concomitant]
  8. TESTOSTERONE [Concomitant]
     Route: 061
     Dates: start: 20030101
  9. OXANDRIN (BTG PHARMACEUTICALS) [Concomitant]

REACTIONS (2)
  - APLASIA PURE RED CELL [None]
  - DRUG INTERACTION [None]
